FAERS Safety Report 13054836 (Version 2)
Quarter: 2017Q1

REPORT INFORMATION
  Report Type: Spontaneous
  Country: HU (occurrence: HU)
  Receive Date: 20161222
  Receipt Date: 20170120
  Transmission Date: 20170428
  Serious: Yes (Other)
  Sender: FDA-Public Use
  Company Number: HU-FRESENIUS KABI-FK201610121

PATIENT
  Age: 54 Year
  Sex: Female

DRUGS (4)
  1. FLUOROURACIL (MANUFACTURER UNKNOWN) [Suspect]
     Active Substance: FLUOROURACIL
     Indication: OVARIAN CANCER STAGE IV
     Route: 065
  2. LEUCOVORIN CALCIUM (MANUFACTURER UNKNOWN) [Suspect]
     Active Substance: LEUCOVORIN CALCIUM
     Indication: OVARIAN CANCER STAGE IV
     Route: 065
  3. BEVACIZUMAB [Suspect]
     Active Substance: BEVACIZUMAB
     Indication: OVARIAN CANCER STAGE IV
     Route: 065
  4. OXALIPLATIN TEVA [Suspect]
     Active Substance: OXALIPLATIN
     Indication: OVARIAN CANCER STAGE IV
     Route: 065

REACTIONS (4)
  - Fatigue [Unknown]
  - Neuropathy peripheral [Unknown]
  - Asthenia [Unknown]
  - White blood cell count decreased [Unknown]
